FAERS Safety Report 5719096-X (Version None)
Quarter: 2008Q2

REPORT INFORMATION
  Report Type: 
  Country: None (occurrence: None)
  Receive Date: 20080423
  Receipt Date: 20080410
  Transmission Date: 20081010
  Serious: Yes (Hospitalization)
  Sender: FDA-Public Use
  Company Number: 100#08#2008-02069

PATIENT
  Age: 69 Year
  Sex: Male

DRUGS (6)
  1. LEFLUNOMIDE [Suspect]
     Indication: RHEUMATOID ARTHRITIS
     Dosage: 20 MG
     Dates: start: 20050501
  2. METHOTREXATE [Suspect]
     Dosage: 7.5 MG
     Dates: start: 20040701, end: 20050101
  3. ETODOLAC [Concomitant]
  4. RANITIDINE [Concomitant]
  5. ACETAMINOPHEN [Concomitant]
  6. NIFEDIPINE [Concomitant]

REACTIONS (19)
  - ALVEOLITIS ALLERGIC [None]
  - ATELECTASIS [None]
  - CHEST PAIN [None]
  - DECREASED APPETITE [None]
  - DRUG HYPERSENSITIVITY [None]
  - DRUG INTOLERANCE [None]
  - FATIGUE [None]
  - FUNGAL INFECTION [None]
  - ILL-DEFINED DISORDER [None]
  - INFECTION [None]
  - LETHARGY [None]
  - LUNG NEOPLASM [None]
  - NAUSEA [None]
  - PULMONARY GRANULOMA [None]
  - RHEUMATOID LUNG [None]
  - SPUTUM CULTURE POSITIVE [None]
  - SPUTUM DISCOLOURED [None]
  - SYNOVITIS [None]
  - WEIGHT DECREASED [None]
